FAERS Safety Report 16530581 (Version 1)
Quarter: 2019Q3

REPORT INFORMATION
  Report Type: Spontaneous
  Country: FR (occurrence: FR)
  Receive Date: 20190704
  Receipt Date: 20190704
  Transmission Date: 20191004
  Serious: Yes (Other)
  Sender: FDA-Public Use
  Company Number: FR-ROCHE-2344643

PATIENT
  Sex: Female

DRUGS (1)
  1. HERCEPTIN [Suspect]
     Active Substance: TRASTUZUMAB
     Indication: PRODUCT USED FOR UNKNOWN INDICATION
     Route: 065

REACTIONS (10)
  - Fatigue [Unknown]
  - Haemorrhoids [Unknown]
  - Depressed mood [Unknown]
  - Oropharyngeal pain [Unknown]
  - Cough [Unknown]
  - Rectal haemorrhage [Unknown]
  - Myalgia [Unknown]
  - Peripheral swelling [Unknown]
  - Urinary tract infection [Unknown]
  - Vulvovaginal mycotic infection [Unknown]
